FAERS Safety Report 11089129 (Version 1)
Quarter: 2015Q2

REPORT INFORMATION
  Report Type: Spontaneous
  Country: GB (occurrence: GB)
  Receive Date: 20150505
  Receipt Date: 20150505
  Transmission Date: 20150821
  Serious: Yes (Other)
  Sender: FDA-Public Use
  Company Number: PHHY2015GB049669

PATIENT
  Age: 66 Year
  Sex: Female
  Weight: 71 kg

DRUGS (5)
  1. CLARITHROMYCIN. [Concomitant]
     Active Substance: CLARITHROMYCIN
     Indication: PRODUCT USED FOR UNKNOWN INDICATION
     Dosage: 1 DF, BID (TAKE ONE EVERY 12 HOURS FOR FIVE DAYS)
     Route: 065
     Dates: start: 20150206, end: 20150211
  2. OMEPRAZOLE. [Suspect]
     Active Substance: OMEPRAZOLE
     Indication: PRODUCT USED FOR UNKNOWN INDICATION
     Dosage: UNK
     Route: 065
  3. LACRI-LUBE [Concomitant]
     Indication: PRODUCT USED FOR UNKNOWN INDICATION
     Dosage: UNK (USE AT NIGHT)
     Route: 065
     Dates: start: 20141127
  4. CANDESARTAN [Concomitant]
     Active Substance: CANDESARTAN
     Indication: PRODUCT USED FOR UNKNOWN INDICATION
     Dosage: 1 DF, QD
     Route: 065
     Dates: start: 20140929
  5. CARBOMERUM 980 [Concomitant]
     Indication: PRODUCT USED FOR UNKNOWN INDICATION
     Dosage: 1 DRP, PRN (1 DROP AS NEEDED)
     Route: 065
     Dates: start: 20141127

REACTIONS (2)
  - Tubulointerstitial nephritis [Recovering/Resolving]
  - Acute kidney injury [Recovering/Resolving]

NARRATIVE: CASE EVENT DATE: 20150309
